FAERS Safety Report 13090396 (Version 3)
Quarter: 2017Q2

REPORT INFORMATION
  Report Type: Report from Study
  Country: DE (occurrence: DE)
  Receive Date: 20170105
  Receipt Date: 20170519
  Transmission Date: 20170830
  Serious: Yes (Death, Hospitalization, Other)
  Sender: FDA-Public Use
  Company Number: PHHY2015DE078362

PATIENT
  Sex: Female
  Weight: 56 kg

DRUGS (11)
  1. MIFLONIDE [Suspect]
     Active Substance: BUDESONIDE
     Indication: CHRONIC OBSTRUCTIVE PULMONARY DISEASE
     Dosage: UNK
     Route: 065
     Dates: start: 20130823
  2. BUDESONIDE. [Suspect]
     Active Substance: BUDESONIDE
     Indication: CHRONIC OBSTRUCTIVE PULMONARY DISEASE
     Dosage: 1 DF, BID
     Route: 065
  3. FORMOTEROL [Suspect]
     Active Substance: FORMOTEROL
     Indication: CHRONIC OBSTRUCTIVE PULMONARY DISEASE
     Dosage: UNK
     Route: 065
     Dates: start: 20130326
  4. SIMVABETA [Concomitant]
     Active Substance: SIMVASTATIN
     Indication: CARDIAC FAILURE
     Dosage: QD
     Route: 065
     Dates: start: 20150622
  5. ULTIBRO BREEZHALER [Suspect]
     Active Substance: GLYCOPYRRONIUM\INDACATEROL
     Indication: CHRONIC OBSTRUCTIVE PULMONARY DISEASE
     Dosage: 1 DF (85 ?G/43 ?G), BID
     Route: 055
  6. BUDESONIDE. [Concomitant]
     Active Substance: BUDESONIDE
     Dosage: 0.2 OT, BID
     Route: 065
     Dates: start: 20150622
  7. ULTIBRO BREEZHALER [Concomitant]
     Active Substance: GLYCOPYRRONIUM\INDACATEROL
     Indication: PRODUCT USED FOR UNKNOWN INDICATION
     Dosage: UNK UNK, BID
     Route: 055
     Dates: start: 20150622
  8. CALCIUM [Concomitant]
     Active Substance: CALCIUM
     Indication: PRODUCT USED FOR UNKNOWN INDICATION
     Route: 065
  9. SEEBRI BREEZHALER [Suspect]
     Active Substance: GLYCOPYRROLATE
     Indication: CHRONIC OBSTRUCTIVE PULMONARY DISEASE
     Dosage: 1 DF, (44 ?G) PRN PER DAY
     Route: 055
     Dates: start: 20130516
  10. PANTOPRAZOL HENNIG [Concomitant]
     Indication: GASTRITIS
     Dosage: 40 MG, QD
     Route: 065
     Dates: start: 20100324
  11. BUDESONIDE. [Concomitant]
     Active Substance: BUDESONIDE
     Indication: CHRONIC OBSTRUCTIVE PULMONARY DISEASE
     Dosage: 0.2 OT, BID
     Route: 065

REACTIONS (9)
  - Oliguria [Fatal]
  - Chronic obstructive pulmonary disease [Not Recovered/Not Resolved]
  - Acute kidney injury [Fatal]
  - Oedema [Fatal]
  - Chromaturia [Fatal]
  - Chronic obstructive pulmonary disease [Recovered/Resolved]
  - Hypertension [Unknown]
  - Drug prescribing error [Unknown]
  - Dehydration [Fatal]

NARRATIVE: CASE EVENT DATE: 20150518
